FAERS Safety Report 11265863 (Version 1)
Quarter: 2015Q3

REPORT INFORMATION
  Report Type: Spontaneous
  Country: US (occurrence: US)
  Receive Date: 20150713
  Receipt Date: 20150713
  Transmission Date: 20151125
  Serious: No
  Sender: FDA-Public Use
  Company Number: US-TAKEDA-2012-08276

PATIENT
  Age: 58 Year
  Sex: Male

DRUGS (5)
  1. CYTOXAN [Suspect]
     Active Substance: CYCLOPHOSPHAMIDE
     Dosage: 300 MG, 1/WEEK
     Route: 048
     Dates: start: 20121112
  2. VELCADE [Suspect]
     Active Substance: BORTEZOMIB
     Dosage: 1.6 MG/M2, 1/WEEK
     Route: 058
     Dates: start: 20121112
  3. VELCADE [Suspect]
     Active Substance: BORTEZOMIB
     Indication: AMYLOIDOSIS
     Dosage: 1.6 MG/M2, 1/WEEK
     Route: 042
     Dates: start: 201208, end: 20121105
  4. CYTOXAN [Suspect]
     Active Substance: CYCLOPHOSPHAMIDE
     Indication: AMYLOIDOSIS
     Dosage: 500 MG, 1/WEEK
     Route: 048
     Dates: start: 201208, end: 20121105
  5. DEXAMETHASONE. [Suspect]
     Active Substance: DEXAMETHASONE
     Indication: AMYLOIDOSIS
     Dosage: 20 MG, 1/WEEK
     Route: 048
     Dates: start: 201208

REACTIONS (3)
  - Constipation [Unknown]
  - Diarrhoea [Unknown]
  - Product use issue [Unknown]

NARRATIVE: CASE EVENT DATE: 201208
